FAERS Safety Report 6367406-5 (Version None)
Quarter: 2009Q3

REPORT INFORMATION
  Report Type: 
  Country: None (occurrence: None)
  Receive Date: 20090921
  Receipt Date: 20090914
  Transmission Date: 20100115
  Serious: Yes (Hospitalization)
  Sender: FDA-Public Use
  Company Number: A0807917A

PATIENT
  Sex: Male
  Weight: 22 kg

DRUGS (1)
  1. SERETIDE [Suspect]
     Dosage: 2PUFF TWICE PER DAY
     Route: 055
     Dates: start: 20090401

REACTIONS (2)
  - OVERDOSE [None]
  - PNEUMONIA [None]
